FAERS Safety Report 4630191-9 (Version None)
Quarter: 2005Q2

REPORT INFORMATION
  Report Type: 
  Country: None (occurrence: None)
  Receive Date: 20050408
  Receipt Date: 20050329
  Transmission Date: 20051028
  Serious: Yes (Hospitalization)
  Sender: FDA-Public Use
  Company Number: FR-JNJFOC-20050307330

PATIENT
  Age: 67 Year
  Sex: Female
  Weight: 64 kg

DRUGS (3)
  1. REMICADE [Suspect]
     Dosage: RE-INITIATION.
     Route: 042
  2. REMICADE [Suspect]
     Indication: PSORIASIS
     Dosage: 4 INFUSIONS ONE YEAR AGO.
     Route: 042
  3. COVERSYL [Concomitant]
     Route: 049

REACTIONS (1)
  - PERIPHERAL EMBOLISM [None]
